FAERS Safety Report 7973894-0 (Version None)
Quarter: 2011Q4

REPORT INFORMATION
  Report Type: 
  Country: None (occurrence: None)
  Receive Date: 20111213
  Receipt Date: 20111207
  Transmission Date: 20120403
  Serious: Yes (Other)
  Sender: FDA-Public Use
  Company Number: AU-BRISTOL-MYERS SQUIBB COMPANY-16000549

PATIENT
  Age: 65 Year
  Sex: Female
  Weight: 74 kg

DRUGS (15)
  1. AVAPRO [Concomitant]
  2. NEXIUM [Concomitant]
  3. PLAQUENIL [Concomitant]
  4. EZETIMIBE [Concomitant]
  5. VENTOLIN [Concomitant]
  6. SYMBICORT [Concomitant]
  7. METHOTREXATE [Concomitant]
  8. FOLIC ACID [Concomitant]
  9. POTASSIUM CHLORIDE [Concomitant]
  10. PLAVIX [Concomitant]
  11. SUCRALFATE [Concomitant]
  12. ZOLEDRONOC ACID [Concomitant]
  13. ORENCIA [Suspect]
     Indication: RHEUMATOID ARTHRITIS
     Dosage: RECENT INFUSION:05AUG11
     Route: 042
     Dates: start: 20101204
  14. XANAX [Concomitant]
  15. MAGNESIUM SULFATE [Concomitant]

REACTIONS (4)
  - DYSPNOEA [None]
  - BRONCHIECTASIS [None]
  - COUGH [None]
  - INFECTION [None]
